FAERS Safety Report 9185812 (Version 1)
Quarter: 2013Q1

REPORT INFORMATION
  Report Type: Spontaneous
  Country: IT (occurrence: None)
  Receive Date: 20130321
  Receipt Date: 20130321
  Transmission Date: 20140127
  Serious: Yes (Life-Threatening)
  Sender: FDA-Public Use
  Company Number: 2013-04947

PATIENT
  Age: 70 Year
  Sex: Male

DRUGS (5)
  1. IRINOTECAN HYDROCHLORIDE [Suspect]
     Indication: ADENOCARCINOMA OF COLON
     Route: 042
  2. IRINOTECAN HYDROCHLORIDE [Suspect]
     Route: 042
  3. IRINOTECAN HYDROCHLORIDE [Suspect]
     Route: 042
  4. FLUOROURACIL (FLUOROURACIL) [Suspect]
     Indication: ADENOCARCINOMA OF COLON
     Route: 042
     Dates: start: 20120528
  5. XELODA (CAPECITABINE) [Suspect]
     Indication: ADENOCARCINOMA OF COLON
     Dates: start: 20120528

REACTIONS (1)
  - Atrial fibrillation [None]
